FAERS Safety Report 15848974 (Version 1)
Quarter: 2019Q1

REPORT INFORMATION
  Report Type: Spontaneous
  Country: DE (occurrence: DE)
  Receive Date: 20190121
  Receipt Date: 20190121
  Transmission Date: 20190417
  Serious: Yes (Hospitalization)
  Sender: FDA-Public Use
  Company Number: DE-PFIZER INC-2019022518

PATIENT
  Age: 71 Year
  Sex: Male

DRUGS (4)
  1. BELOC ZOK [Concomitant]
     Active Substance: METOPROLOL SUCCINATE
     Dosage: 1 DF, QD
  2. FRAGMIN [Suspect]
     Active Substance: DALTEPARIN SODIUM
  3. VOLTAREN RESINAT [DICLOFENAC RESINATE] [Suspect]
     Active Substance: DICLOFENAC
     Indication: PAIN
     Dosage: 2 DF, 1X/DAY
  4. FOSINORM [Concomitant]
     Indication: HYPERTENSION

REACTIONS (3)
  - Abdominal pain [Unknown]
  - Gamma-glutamyltransferase increased [Unknown]
  - Transaminases increased [Unknown]

NARRATIVE: CASE EVENT DATE: 200210
